FAERS Safety Report 21504374 (Version 5)
Quarter: 2023Q1

REPORT INFORMATION
  Report Type: Spontaneous
  Country: US (occurrence: US)
  Receive Date: 20221025
  Receipt Date: 20230217
  Transmission Date: 20230418
  Serious: Yes (Hospitalization)
  Sender: FDA-Public Use
  Company Number: US-KARYOPHARM-2022KPT001256

PATIENT

DRUGS (12)
  1. XPOVIO [Suspect]
     Active Substance: SELINEXOR
     Indication: Brain neoplasm malignant
     Dosage: 80 MG, WEEKLY
     Route: 048
     Dates: start: 202209, end: 20221027
  2. XPOVIO [Suspect]
     Active Substance: SELINEXOR
     Dosage: 40 MG, BID
     Route: 048
     Dates: end: 20221024
  3. XPOVIO [Suspect]
     Active Substance: SELINEXOR
     Dosage: 60 MG, WEEKLY
     Route: 048
     Dates: start: 2023
  4. ATORVASTATIN [Concomitant]
     Active Substance: ATORVASTATIN
     Indication: Blood cholesterol increased
  5. LEVOTHYROXINE [Concomitant]
     Active Substance: LEVOTHYROXINE
  6. METFORMIN [Concomitant]
     Active Substance: METFORMIN HYDROCHLORIDE
  7. OMEPRAZOLE [Concomitant]
     Active Substance: OMEPRAZOLE
  8. ZOFRAN [Concomitant]
     Active Substance: ONDANSETRON HYDROCHLORIDE
  9. BACTRIM [Concomitant]
     Active Substance: SULFAMETHOXAZOLE\TRIMETHOPRIM
  10. DEXAMETHASONE [Concomitant]
     Active Substance: DEXAMETHASONE
  11. KEPPRA [Concomitant]
     Active Substance: LEVETIRACETAM
     Indication: Seizure
  12. FOLIC ACID [Concomitant]
     Active Substance: FOLIC ACID

REACTIONS (8)
  - Full blood count decreased [Unknown]
  - Dehydration [Unknown]
  - Platelet count decreased [Recovering/Resolving]
  - Somnolence [Recovering/Resolving]
  - Cough [Unknown]
  - Fatigue [Not Recovered/Not Resolved]
  - Decreased appetite [Unknown]
  - Off label use [Unknown]

NARRATIVE: CASE EVENT DATE: 20220101
